FAERS Safety Report 16538723 (Version 1)
Quarter: 2019Q3

REPORT INFORMATION
  Report Type: Report from Study
  Country: IT (occurrence: IT)
  Receive Date: 20190708
  Receipt Date: 20190708
  Transmission Date: 20191004
  Serious: Yes (Hospitalization, Other)
  Sender: FDA-Public Use
  Company Number: IT-AUROBINDO-AUR-APL-2019-037995

PATIENT

DRUGS (1)
  1. CEFIXIME. [Suspect]
     Active Substance: CEFIXIME
     Indication: SINUSITIS
     Dosage: 400 MILLIGRAM, DAILY
     Route: 065

REACTIONS (8)
  - Pyrexia [Unknown]
  - Drug ineffective [Unknown]
  - Meningitis bacterial [Unknown]
  - Sinusitis [Unknown]
  - Headache [Unknown]
  - Meningeal disorder [Unknown]
  - Confusional state [Unknown]
  - Pneumonia pneumococcal [Unknown]
